FAERS Safety Report 13046599 (Version 1)
Quarter: 2016Q4

REPORT INFORMATION
  Report Type: Spontaneous
  Country: US (occurrence: US)
  Receive Date: 20161220
  Receipt Date: 20161220
  Transmission Date: 20170207
  Serious: Yes (Hospitalization)
  Sender: FDA-Public Use
  Company Number: PHEH2016US032389

PATIENT
  Sex: Female

DRUGS (5)
  1. ELEXIA [Concomitant]
     Indication: ANTICOAGULANT THERAPY
     Dosage: UNK
     Route: 065
  2. RECLAST [Suspect]
     Active Substance: ZOLEDRONIC ACID
     Indication: PRODUCT USED FOR UNKNOWN INDICATION
     Dosage: UNK (ONE INFUSION)
     Route: 065
  3. CALCIUM [Concomitant]
     Active Substance: CALCIUM
     Indication: PRODUCT USED FOR UNKNOWN INDICATION
     Dosage: UNK
     Route: 065
  4. GARLIC. [Concomitant]
     Active Substance: GARLIC
     Indication: PRODUCT USED FOR UNKNOWN INDICATION
     Dosage: UNK
     Route: 065
  5. ECHINACEA [Concomitant]
     Active Substance: ECHINACEA, UNSPECIFIED
     Indication: PRODUCT USED FOR UNKNOWN INDICATION
     Dosage: UNK
     Route: 065

REACTIONS (7)
  - Fracture pain [Unknown]
  - Blindness [Unknown]
  - Spinal fracture [Unknown]
  - Pain in extremity [Unknown]
  - Temporal arteritis [Recovering/Resolving]
  - Temporomandibular joint syndrome [Unknown]
  - Back pain [Unknown]
